FAERS Safety Report 10361106 (Version 1)
Quarter: 2014Q3

REPORT INFORMATION
  Report Type: Spontaneous
  Country: FR (occurrence: None)
  Receive Date: 20140731
  Receipt Date: 20140731
  Transmission Date: 20150326
  Serious: Yes (Hospitalization, Other)
  Sender: FDA-Public Use
  Company Number: SYM-2014-23481

PATIENT
  Age: 58 Year
  Sex: Male

DRUGS (8)
  1. BI-TILDIEM [Suspect]
     Active Substance: DILTIAZEM
     Indication: ANGINA PECTORIS
     Route: 048
     Dates: start: 20140627, end: 20140701
  2. KARDEGIC (ACETYLSALICYLIC LYSINE) [Concomitant]
  3. INIPOMP (PANTOPRAZOLE SODIUM SESQUIHYDRATE) [Concomitant]
  4. LIORESAL [Concomitant]
     Active Substance: BACLOFEN
  5. TEGRETOL [Suspect]
     Active Substance: CARBAMAZEPINE
     Indication: NEURALGIA
     Dosage: 600 MG. 3 IN 1 D, ORAL  STOPPED THERAPY
     Route: 048
  6. TRIATEC (RAMIPRIL) [Concomitant]
     Active Substance: RAMIPRIL
  7. CYMBLATA (DULOXETINE HYDROCHLORIDE) (DULOXETINE HYDROCHLORIDE) [Concomitant]
  8. BISOPRODOL [Concomitant]

REACTIONS (8)
  - Overdose [None]
  - Fatigue [None]
  - Dizziness [None]
  - Malaise [None]
  - Nausea [None]
  - Dysarthria [None]
  - Hyperhidrosis [None]
  - Asthenia [None]

NARRATIVE: CASE EVENT DATE: 20140701
